FAERS Safety Report 10455486 (Version 1)
Quarter: 2014Q3

REPORT INFORMATION
  Report Type: Spontaneous
  Country: US (occurrence: None)
  Receive Date: 20140915
  Receipt Date: 20140915
  Transmission Date: 20150326
  Serious: Yes (Life-Threatening, Hospitalization)
  Sender: FDA-Public Use
  Company Number: None

PATIENT
  Age: 59 Year
  Sex: Female
  Weight: 49.5 kg

DRUGS (1)
  1. PERCOCET [Suspect]
     Active Substance: ACETAMINOPHEN\OXYCODONE HYDROCHLORIDE
     Indication: SUICIDE ATTEMPT
     Dosage: 80 TABS ORAL
     Route: 048

REACTIONS (5)
  - Aspartate aminotransferase increased [None]
  - Suicide attempt [None]
  - Intentional overdose [None]
  - Alanine aminotransferase increased [None]
  - International normalised ratio increased [None]

NARRATIVE: CASE EVENT DATE: 20140911
